FAERS Safety Report 8950871 (Version 1)
Quarter: 2012Q4

REPORT INFORMATION
  Report Type: Spontaneous
  Country: US (occurrence: None)
  Receive Date: 20121121
  Receipt Date: 20121121
  Transmission Date: 20130627
  Serious: Yes (Death, Hospitalization)
  Sender: FDA-Public Use
  Company Number: 2012033971

PATIENT
  Age: 49 Year
  Sex: Male

DRUGS (2)
  1. IMMUNOGLOBULIN [Suspect]
     Indication: MYELITIS TRANSVERSE
     Route: 042
  2. STEROID [Suspect]

REACTIONS (3)
  - Respiratory disorder [None]
  - No therapeutic response [None]
  - Glioblastoma multiforme [None]
